FAERS Safety Report 13838920 (Version 1)
Quarter: 2017Q3

REPORT INFORMATION
  Report Type: Spontaneous
  Country: US (occurrence: US)
  Receive Date: 20170805
  Receipt Date: 20170805
  Transmission Date: 20171127
  Serious: Yes (Life-Threatening, Other)
  Sender: FDA-Public Use
  Company Number: None

PATIENT
  Age: 49 Year
  Sex: Male
  Weight: 96.75 kg

DRUGS (1)
  1. TESTOSTERONE. [Suspect]
     Active Substance: TESTOSTERONE
     Indication: BLOOD TESTOSTERONE ABNORMAL
     Dates: start: 20070508, end: 20080319

REACTIONS (5)
  - Stress [None]
  - Vasodilatation [None]
  - Anxiety [None]
  - Pain [None]
  - Application site reaction [None]

NARRATIVE: CASE EVENT DATE: 20170804
